FAERS Safety Report 7757125-2 (Version None)
Quarter: 2011Q3

REPORT INFORMATION
  Report Type: 
  Country: None (occurrence: None)
  Receive Date: 20110916
  Receipt Date: 20110908
  Transmission Date: 20111222
  Serious: Yes (Hospitalization)
  Sender: FDA-Public Use
  Company Number: JP-MERCK-1109USA00292

PATIENT
  Age: 43 Year
  Sex: Female

DRUGS (2)
  1. DOGMATYL [Suspect]
     Route: 048
     Dates: start: 20110201, end: 20110729
  2. PEPCID [Suspect]
     Route: 048
     Dates: start: 20110715, end: 20110729

REACTIONS (1)
  - LIVER DISORDER [None]
